FAERS Safety Report 18138501 (Version 2)
Quarter: 2020Q3

REPORT INFORMATION
  Report Type: Spontaneous
  Country: US (occurrence: US)
  Receive Date: 20200812
  Receipt Date: 20200812
  Transmission Date: 20201103
  Serious: Yes (Death, Other)
  Sender: FDA-Public Use
  Company Number: US-GLAXOSMITHKLINE-US2020157324

PATIENT
  Age: 57 Year

DRUGS (1)
  1. ZANTAC [Suspect]
     Active Substance: RANITIDINE HYDROCHLORIDE
     Dates: start: 19841015, end: 20110315

REACTIONS (5)
  - Bladder cancer [Unknown]
  - Brain injury [Unknown]
  - Gastrointestinal carcinoma [Unknown]
  - Neoplasm malignant [Fatal]
  - Gastric cancer [Unknown]
